FAERS Safety Report 9419733 (Version 5)
Quarter: 2014Q3

REPORT INFORMATION
  Report Type: Spontaneous
  Country: US (occurrence: US)
  Receive Date: 20130725
  Receipt Date: 20140709
  Transmission Date: 20150326
  Serious: Yes (Hospitalization, Other)
  Sender: FDA-Public Use
  Company Number: US-009507513-1307USA014158

PATIENT
  Sex: Female
  Weight: 90.7 kg

DRUGS (2)
  1. NUVARING [Suspect]
     Active Substance: ETHINYL ESTRADIOL\ETONOGESTREL
     Indication: CONTRACEPTION
     Dosage: UNK
     Route: 067
     Dates: start: 20061130
  2. NUVARING [Suspect]
     Active Substance: ETHINYL ESTRADIOL\ETONOGESTREL
     Dosage: UNK
     Route: 067
     Dates: start: 20080321, end: 20101001

REACTIONS (25)
  - Ligament operation [Unknown]
  - Fungal infection [Unknown]
  - Polycystic ovaries [Unknown]
  - Hypercoagulation [Unknown]
  - Papilloma viral infection [Unknown]
  - Abdominal pain [Unknown]
  - Irregular sleep phase [Unknown]
  - Neck pain [Unknown]
  - Pneumonia [Unknown]
  - Pulmonary embolism [Recovered/Resolved]
  - Phlebitis [Unknown]
  - Insulin resistance [Not Recovered/Not Resolved]
  - Increased appetite [Unknown]
  - Adverse drug reaction [Unknown]
  - Deep vein thrombosis [Unknown]
  - Back pain [Not Recovered/Not Resolved]
  - Diabetes mellitus [Unknown]
  - Vaginal discharge [Not Recovered/Not Resolved]
  - Metrorrhagia [Unknown]
  - Ligament rupture [Unknown]
  - Weight decreased [Unknown]
  - Vulvovaginitis trichomonal [Unknown]
  - Depression [Unknown]
  - Incorrect drug administration duration [Unknown]
  - Road traffic accident [Unknown]

NARRATIVE: CASE EVENT DATE: 200701
